FAERS Safety Report 12493574 (Version 4)
Quarter: 2016Q3

REPORT INFORMATION
  Report Type: Spontaneous
  Country: US (occurrence: US)
  Receive Date: 20160623
  Receipt Date: 20160810
  Transmission Date: 20161109
  Serious: No
  Sender: FDA-Public Use
  Company Number: US-PFIZER INC-2016285781

PATIENT
  Age: 63 Year
  Sex: Male
  Weight: 129.27 kg

DRUGS (21)
  1. ZIMS MAX FREEZE [Suspect]
     Active Substance: LIDOCAINE\MENTHOL\MENTHYL SALICYLATE, (+/-)-
     Indication: PAIN IN EXTREMITY
     Dosage: ROLL ON 3  TO 4 TIMES DAILY ON FOOT
     Route: 061
     Dates: start: 20160502, end: 20160528
  2. ZIMS MAX FREEZE [Suspect]
     Active Substance: LIDOCAINE\MENTHOL\MENTHYL SALICYLATE, (+/-)-
     Dosage: UNK, AS NEEDED
     Dates: start: 20160502, end: 20160531
  3. METFORMIN [Concomitant]
     Active Substance: METFORMIN HYDROCHLORIDE
     Dosage: UNK
     Dates: start: 20130123
  4. GLIPIZIDE. [Concomitant]
     Active Substance: GLIPIZIDE
     Indication: DIABETES MELLITUS
     Dosage: 5MG TABLET BY MOUTH ONE IN MORNING AND TWO AT NIGHT
     Route: 048
     Dates: start: 20130123
  5. TAMSULOSIN HCL [Concomitant]
     Active Substance: TAMSULOSIN
     Dosage: UNK
     Dates: start: 20130605
  6. LYRICA [Suspect]
     Active Substance: PREGABALIN
     Indication: DIABETIC NEUROPATHY
     Dosage: 25 MG, 3X/DAY
     Route: 048
     Dates: start: 201605, end: 20160528
  7. VOLTAREN [Suspect]
     Active Substance: DICLOFENAC SODIUM
     Indication: TENDON PAIN
     Dosage: 2 G, 2X/DAY
     Dates: start: 20160502, end: 20160531
  8. VOLTAREN [Suspect]
     Active Substance: DICLOFENAC SODIUM
     Dosage: UNK UNK, 2X/DAY
     Dates: start: 20160502, end: 20160531
  9. HYDROCHLOROTHIAZIDE. [Concomitant]
     Active Substance: HYDROCHLOROTHIAZIDE
     Dosage: 25 MG, 1X/DAY
     Dates: start: 20130416
  10. ASPIRIN. [Concomitant]
     Active Substance: ASPIRIN
     Indication: PAIN
     Dosage: 600 MG, DAILY
     Route: 048
  11. VITAMIN C [Concomitant]
     Active Substance: ASCORBIC ACID
     Indication: PROPHYLAXIS
     Dosage: 500 MG, DAILY (500MG 1 TABLET BY MOUTH DAILY)
     Route: 048
  12. LOSARTAN. [Concomitant]
     Active Substance: LOSARTAN
     Dosage: 50 MG, 1X/DAY
     Dates: start: 20130416
  13. METFORMIN [Concomitant]
     Active Substance: METFORMIN HYDROCHLORIDE
     Indication: DIABETES MELLITUS
     Dosage: 500 MG, 2X/DAY
     Dates: start: 20130416
  14. VOLTAREN [Suspect]
     Active Substance: DICLOFENAC SODIUM
     Indication: PAIN IN EXTREMITY
     Dosage: 1% TOPICAL GEL TWICE DAILY FILLED IN PREMEASURED APPLICATOR 1 1/2 INCHES
     Route: 061
     Dates: start: 20160502, end: 20160528
  15. TAMSULOSIN HCL [Concomitant]
     Active Substance: TAMSULOSIN
     Indication: BLADDER DISORDER
     Dosage: 0.4 MG, 2X/DAY
     Route: 048
     Dates: start: 20160330
  16. ASPIRIN. [Concomitant]
     Active Substance: ASPIRIN
     Dosage: 1000 MG, DAILY (1000MG 2 500MG TABLETS BY MOUTH DAILY)
     Route: 048
  17. GLYBURIDE. [Concomitant]
     Active Substance: GLYBURIDE
     Dosage: 15 MG, DAILY
     Dates: start: 20130416
  18. LYRICA [Suspect]
     Active Substance: PREGABALIN
     Indication: BACK PAIN
     Dosage: 25 MG, 3X/DAY
     Dates: start: 20160502, end: 20160531
  19. HYDROCHLOROTHIAZIDE. [Concomitant]
     Active Substance: HYDROCHLOROTHIAZIDE
     Indication: HYPERTENSION
     Dosage: 25 MG, DAILY
     Route: 048
     Dates: start: 20130123
  20. LOSARTAN. [Concomitant]
     Active Substance: LOSARTAN
     Indication: HYPERTENSION
     Dosage: 50 MG, DAILY
     Route: 048
     Dates: start: 20130123
  21. OMEPRAZOLE. [Concomitant]
     Active Substance: OMEPRAZOLE
     Dosage: 20 MG, 1X/DAY
     Dates: start: 20130418

REACTIONS (1)
  - Drug screen false positive [Recovered/Resolved]

NARRATIVE: CASE EVENT DATE: 20160502
